FAERS Safety Report 5921740-9 (Version None)
Quarter: 2008Q4

REPORT INFORMATION
  Report Type: 
  Country: None (occurrence: None)
  Receive Date: 20081016
  Receipt Date: 20081016
  Transmission Date: 20090506
  Serious: No
  Sender: FDA-Public Use
  Company Number: None

PATIENT
  Sex: Female
  Weight: 47.6277 kg

DRUGS (1)
  1. BONIVA [Suspect]
     Indication: OSTEOPOROSIS
     Dosage: ONE EVERY 30 DAYS
     Dates: start: 20080829, end: 20080929

REACTIONS (16)
  - ABNORMAL SENSATION IN EYE [None]
  - ANOREXIA [None]
  - ARTHRALGIA [None]
  - BACK PAIN [None]
  - BONE PAIN [None]
  - DYSPEPSIA [None]
  - FATIGUE [None]
  - FEELING ABNORMAL [None]
  - FLATULENCE [None]
  - HEADACHE [None]
  - INFLUENZA [None]
  - MUSCULOSKELETAL CHEST PAIN [None]
  - NECK PAIN [None]
  - PAIN IN EXTREMITY [None]
  - PAIN IN JAW [None]
  - SINUSITIS [None]
